FAERS Safety Report 11321714 (Version 2)
Quarter: 2015Q3

REPORT INFORMATION
  Report Type: Spontaneous
  Country: US (occurrence: US)
  Receive Date: 20150729
  Receipt Date: 20150730
  Transmission Date: 20151125
  Serious: No
  Sender: FDA-Public Use
  Company Number: US-BAYER-2015-383407

PATIENT
  Age: 57 Year
  Sex: Female
  Weight: 58.96 kg

DRUGS (2)
  1. VITAMIN D [Concomitant]
     Active Substance: CHOLECALCIFEROL
     Dosage: UNK
  2. ALEVE [Suspect]
     Active Substance: NAPROXEN SODIUM
     Indication: ANALGESIC THERAPY
     Dosage: 2 DF, BID ONCE A WEEK
     Route: 048

REACTIONS (3)
  - Product use issue [Unknown]
  - Product use issue [None]
  - Therapeutic response unexpected [Unknown]
